FAERS Safety Report 7191525-7 (Version None)
Quarter: 2010Q4

REPORT INFORMATION
  Report Type: 
  Country: None (occurrence: None)
  Receive Date: 20101223
  Receipt Date: 20101201
  Transmission Date: 20110411
  Serious: Yes (Hospitalization)
  Sender: FDA-Public Use
  Company Number: BE-BAYER-2010-003697

PATIENT
  Age: 68 Year
  Sex: Female

DRUGS (5)
  1. MOXIFLOXACIN HCL [Suspect]
     Indication: BRONCHITIS
     Dosage: 400 MG, QD
     Route: 048
     Dates: start: 20101109
  2. CRESTOR [Concomitant]
     Dosage: 20 MG, QD
  3. EMCORETIC [Concomitant]
     Route: 048
  4. ZOLPIDEM [Concomitant]
     Dosage: UNK MG, UNK
     Route: 048
  5. DIAMICRON [Concomitant]
     Dosage: 80 MG, UNK
     Route: 048

REACTIONS (1)
  - ANAPHYLACTIC SHOCK [None]
